FAERS Safety Report 6399927-3 (Version None)
Quarter: 2009Q4

REPORT INFORMATION
  Report Type: 
  Country: None (occurrence: None)
  Receive Date: 20091014
  Receipt Date: 20091008
  Transmission Date: 20100525
  Serious: Yes (Other)
  Sender: FDA-Public Use
  Company Number: US-AVENTIS-200919006US

PATIENT
  Age: 66 Year
  Sex: Male

DRUGS (2)
  1. LANTUS [Suspect]
     Route: 058
  2. NOVOLOG [Suspect]
     Dosage: DOSE: UNK

REACTIONS (4)
  - CEREBROVASCULAR ACCIDENT [None]
  - HYPERSOMNIA [None]
  - OFF LABEL USE [None]
  - PARALYSIS [None]
